FAERS Safety Report 7927563-3 (Version None)
Quarter: 2011Q4

REPORT INFORMATION
  Report Type: 
  Country: None (occurrence: None)
  Receive Date: 20111118
  Receipt Date: 20111117
  Transmission Date: 20120403
  Serious: No
  Sender: FDA-Public Use
  Company Number: US-PFIZER INC-2011282403

PATIENT
  Sex: Male
  Weight: 25.4 kg

DRUGS (1)
  1. GENOTROPIN [Suspect]
     Dosage: 1.2 MG, 1X/DAY
     Route: 058
     Dates: start: 20110101

REACTIONS (1)
  - HEADACHE [None]
